FAERS Safety Report 19217333 (Version 1)
Quarter: 2021Q2

REPORT INFORMATION
  Report Type: Spontaneous
  Country: US (occurrence: US)
  Receive Date: 20210505
  Receipt Date: 20210505
  Transmission Date: 20210717
  Serious: Yes (Other)
  Sender: FDA-Public Use
  Company Number: US-PFIZER INC-2021458141

PATIENT
  Age: 67 Year
  Sex: Female

DRUGS (1)
  1. IBRANCE [Suspect]
     Active Substance: PALBOCICLIB
     Dosage: UNK

REACTIONS (10)
  - Dyspnoea [Unknown]
  - Injury [Unknown]
  - Abdominal pain upper [Unknown]
  - Productive cough [Unknown]
  - Respiratory disorder [Unknown]
  - Road traffic accident [Unknown]
  - Pneumonia [Unknown]
  - Wheezing [Unknown]
  - Pain [Unknown]
  - Respiratory tract congestion [Unknown]
